FAERS Safety Report 8282955-0 (Version None)
Quarter: 2012Q2

REPORT INFORMATION
  Report Type: 
  Country: None (occurrence: None)
  Receive Date: 20120413
  Receipt Date: 20120329
  Transmission Date: 20120825
  Serious: Yes (Other)
  Sender: FDA-Public Use
  Company Number: GB-WATSON-2012-04724

PATIENT
  Age: 71 Year
  Sex: Female

DRUGS (13)
  1. LANSOPRAZOLE [Concomitant]
     Indication: PRODUCT USED FOR UNKNOWN INDICATION
     Dosage: UNK
     Route: 065
  2. NITROFURANTOIN [Concomitant]
     Indication: URINARY TRACT INFECTION
     Dosage: UNK
     Route: 065
  3. ASPIRIN [Concomitant]
     Indication: PRODUCT USED FOR UNKNOWN INDICATION
     Dosage: UNK
     Route: 065
  4. ATORVASTATIN [Concomitant]
     Indication: PRODUCT USED FOR UNKNOWN INDICATION
     Dosage: UNK
     Route: 065
  5. MAGNESIUM ASPARTATE HYDROCHLORIDE [Suspect]
     Indication: HYPOMAGNESAEMIA
     Dosage: 10 MMOL, DAILY
     Route: 048
     Dates: start: 20120113, end: 20120209
  6. CIPROFLOXACIN HYDROCHLORIDE [Suspect]
     Indication: PRODUCT USED FOR UNKNOWN INDICATION
     Dosage: 600 MG, BID
     Route: 042
     Dates: start: 20120111, end: 20120206
  7. PIPERACILLIN AND TAZOBACTAM [Suspect]
     Indication: PRODUCT USED FOR UNKNOWN INDICATION
     Dosage: 4.5 G, UNKNOWN
     Route: 042
     Dates: start: 20120221, end: 20120222
  8. MAGNESIUM SULPHATE                 /01097001/ [Concomitant]
     Indication: HYPOMAGNESAEMIA
     Dosage: 25 MMOL, UNKNOWN
     Route: 042
     Dates: start: 20120107, end: 20120128
  9. NICORANDIL [Concomitant]
     Indication: PRODUCT USED FOR UNKNOWN INDICATION
     Dosage: UNK
     Route: 065
  10. FERROUS SULFATE TAB [Concomitant]
     Indication: PRODUCT USED FOR UNKNOWN INDICATION
     Dosage: UNK
     Route: 065
  11. CIPROFLOXACIN HCL [Suspect]
     Indication: PRODUCT USED FOR UNKNOWN INDICATION
     Dosage: 750 MG, BID
     Route: 048
     Dates: start: 20120110, end: 20120211
  12. TEICOPLANIN [Concomitant]
     Indication: PRODUCT USED FOR UNKNOWN INDICATION
     Dosage: 800 MG, DAILY
     Route: 042
     Dates: start: 20120109, end: 20120110
  13. BISOPROLOL FUMARATE [Concomitant]
     Indication: PRODUCT USED FOR UNKNOWN INDICATION
     Dosage: UNK
     Route: 065

REACTIONS (6)
  - RASH MACULO-PAPULAR [None]
  - RASH ERYTHEMATOUS [None]
  - PRURITUS [None]
  - SKIN WARM [None]
  - PARAESTHESIA [None]
  - PRODUCT CONTAMINATION MICROBIAL [None]
